FAERS Safety Report 20097856 (Version 1)
Quarter: 2021Q4

REPORT INFORMATION
  Report Type: Spontaneous
  Country: US (occurrence: US)
  Receive Date: 20211122
  Receipt Date: 20211122
  Transmission Date: 20220304
  Serious: Yes (Death, Life-Threatening, Other)
  Sender: FDA-Public Use
  Company Number: US-AZURITY PHARMACEUTICALS, INC.-2021AZY00120

PATIENT
  Age: 40 Year
  Sex: Female

DRUGS (2)
  1. VANCOMYCIN HYDROCHLORIDE [Suspect]
     Active Substance: VANCOMYCIN HYDROCHLORIDE
     Indication: Wound dehiscence
     Route: 042
  2. CEFAZOLIN [Concomitant]
     Active Substance: CEFAZOLIN
     Indication: Wound dehiscence
     Route: 065

REACTIONS (6)
  - Thrombotic microangiopathy [Recovering/Resolving]
  - Acute respiratory failure [Fatal]
  - Cardiac arrest [Fatal]
  - Mental status changes [Recovering/Resolving]
  - Disseminated intravascular coagulation [None]
  - Cutaneous vasculitis [None]
